FAERS Safety Report 4618550-1 (Version None)
Quarter: 2005Q1

REPORT INFORMATION
  Report Type: 
  Country: None (occurrence: None)
  Receive Date: 20050323
  Receipt Date: 20050113
  Transmission Date: 20050727
  Serious: Yes (Hospitalization)
  Sender: FDA-Public Use
  Company Number: 2005012593

PATIENT
  Age: 36 Year
  Sex: Female

DRUGS (6)
  1. ZOLOFT [Suspect]
     Indication: ILL-DEFINED DISORDER
     Dates: start: 20041120
  2. LEVOTHYROXINE (LEVOTHYROXINE) [Concomitant]
  3. THIORIDAZINE HCL [Concomitant]
  4. BROMAZEPAM (BROMAZEPAM) [Concomitant]
  5. RISPERDONE (RISPERIDONE) [Concomitant]
  6. HEPTAMINOL (HEPTAMINOL) [Concomitant]

REACTIONS (2)
  - GENERAL PHYSICAL HEALTH DETERIORATION [None]
  - PURPURA [None]
